FAERS Safety Report 23688613 (Version 2)
Quarter: 2024Q2

REPORT INFORMATION
  Report Type: Report from Study
  Country: US (occurrence: US)
  Receive Date: 20240329
  Receipt Date: 20240430
  Transmission Date: 20240716
  Serious: Yes (Other)
  Sender: FDA-Public Use
  Company Number: US-OTSUKA PHARMACEUTICAL NETHERLANDS B.V.-AUR-005501

PATIENT
  Sex: Female

DRUGS (1)
  1. LUPKYNIS [Suspect]
     Active Substance: VOCLOSPORIN
     Indication: Lupus nephritis
     Dosage: 23.7 MILLIGRAM, BID
     Route: 048
     Dates: start: 20230415

REACTIONS (7)
  - Leukopenia [Unknown]
  - Arthralgia [Unknown]
  - Rash [Unknown]
  - Arthritis [Unknown]
  - Anaemia [Unknown]
  - Headache [Unknown]
  - Product packaging difficult to open [Unknown]
